FAERS Safety Report 5051334-1 (Version None)
Quarter: 2006Q3

REPORT INFORMATION
  Report Type: 
  Country: None (occurrence: None)
  Receive Date: 20060714
  Receipt Date: 20060705
  Transmission Date: 20061208
  Serious: Yes (Hospitalization)
  Sender: FDA-Public Use
  Company Number: US-JNJFOC-20060701124

PATIENT
  Sex: Female
  Weight: 117.94 kg

DRUGS (4)
  1. REMICADE [Suspect]
     Indication: POLYARTHRITIS
     Route: 042
  2. REMICADE [Suspect]
     Indication: SARCOIDOSIS
     Dosage: 4 VIALS
     Route: 042
  3. LOVENOX [Suspect]
     Indication: DRUG USE FOR UNKNOWN INDICATION
  4. PREDNISONE [Concomitant]

REACTIONS (8)
  - ABDOMINAL DISTENSION [None]
  - ABDOMINAL PAIN [None]
  - CYSTITIS [None]
  - ERYTHEMA [None]
  - HAEMATOMA [None]
  - INFUSION RELATED REACTION [None]
  - NAUSEA [None]
  - RASH MACULAR [None]
